FAERS Safety Report 21556218 (Version 1)
Quarter: 2022Q4

REPORT INFORMATION
  Report Type: Other
  Country: None (occurrence: US)
  Receive Date: 20221104
  Receipt Date: 20221104
  Transmission Date: 20230113
  Serious: No
  Sender: FDA-Public Use
  Company Number: US-Ascent Pharmaceuticals, Inc.-2134540

PATIENT

DRUGS (1)
  1. DEXTROAMPHET SACCHARAT, AMPHET ASPARTATE, DEXTROAMPHET SULFATE AND AMP [Suspect]
     Active Substance: AMPHETAMINE ASPARTATE\AMPHETAMINE SULFATE\DEXTROAMPHETAMINE SACCHARATE\DEXTROAMPHETAMINE SULFATE
     Indication: Product used for unknown indication
     Route: 065
     Dates: start: 20220811

REACTIONS (17)
  - Hyperhidrosis [Unknown]
  - Chest pain [Unknown]
  - Dry mouth [Unknown]
  - Depression [Unknown]
  - Panic attack [Unknown]
  - Dizziness [Unknown]
  - Nausea [Unknown]
  - Confusional state [Unknown]
  - Bruxism [Unknown]
  - Personal relationship issue [Unknown]
  - Headache [Unknown]
  - Impaired work ability [Unknown]
  - Product substitution issue [Unknown]
  - Drug ineffective [Unknown]
  - Disturbance in attention [Unknown]
  - Product quality issue [Unknown]
  - Feeling abnormal [Unknown]

NARRATIVE: CASE EVENT DATE: 20220819
